FAERS Safety Report 21088832 (Version 2)
Quarter: 2022Q3

REPORT INFORMATION
  Report Type: Spontaneous
  Country: GB (occurrence: GB)
  Receive Date: 20220715
  Receipt Date: 20220803
  Transmission Date: 20221027
  Serious: Yes (Other)
  Sender: FDA-Public Use
  Company Number: None

PATIENT
  Age: 78 Year
  Sex: Female
  Weight: 124 kg

DRUGS (14)
  1. METRONIDAZOLE [Suspect]
     Active Substance: METRONIDAZOLE
     Dosage: UNK
     Route: 065
     Dates: start: 20220611
  2. CIPROFLOXACIN [Suspect]
     Active Substance: CIPROFLOXACIN
     Dosage: 500 MG
     Route: 065
     Dates: start: 20220611
  3. CALCIUM CARBONATE\CHOLECALCIFEROL [Concomitant]
     Active Substance: CALCIUM CARBONATE\CHOLECALCIFEROL
     Dosage: CUMULATIVE DOSE TO FIRST REACTION: 223.958333
     Route: 065
     Dates: start: 20211125
  4. AMITRIPTYLINE HYDROCHLORIDE [Concomitant]
     Active Substance: AMITRIPTYLINE HYDROCHLORIDE
     Dosage: 1 {DF}, QD, EACH NIGHT CUMULATIVE DOSE TO FIRST REACTION: 223.958333
     Route: 065
     Dates: start: 20211125
  5. APIXABAN [Concomitant]
     Active Substance: APIXABAN
     Indication: Thrombosis prophylaxis
     Dosage: 1 {DF}, BID, CUMULATIVE DOSE TO FIRST REACTION: 215.916666
     Route: 065
     Dates: start: 20220321
  6. ATORVASTATIN [Concomitant]
     Active Substance: ATORVASTATIN
     Dosage: 1 {DF}, QD, CUMULATIVE DOSE TO FIRST REACTION: 223.958333
     Route: 065
     Dates: start: 20211125
  7. CODEINE PHOSPHATE [Concomitant]
     Active Substance: CODEINE PHOSPHATE
     Dosage: WHEN REQUIRED FOR...CUMULATIVE DOSE TO FIRST RECATION:124.0
     Route: 065
     Dates: start: 20220606, end: 20220613
  8. FOSFOMYCIN [Concomitant]
     Active Substance: FOSFOMYCIN
     Dosage: 1 {DF} SACHET DISSOLVED IN A GLASS OF WATER
     Route: 065
     Dates: start: 20220513, end: 20220514
  9. FUROSEMIDE [Concomitant]
     Active Substance: FUROSEMIDE
     Dosage: 1 DF, QD, MORNING CUMULATIVE DOSE TO FIRST REACTION: 223.958333
     Route: 065
     Dates: start: 20211125
  10. HUMULIN L [Concomitant]
     Active Substance: INSULIN HUMAN
     Dosage: USE AS DIRECTED
     Route: 065
     Dates: start: 20211207
  11. HYDROCORTISONE [Concomitant]
     Active Substance: HYDROCORTISONE
     Dosage: 1 {DF}, BID, APPLY THINLY TO THE AFFECTED AREA(S) CUMULATIVE DOSE TOFIRST REACTION: 100.0
     Route: 065
     Dates: start: 20220518, end: 20220601
  12. IRBESARTAN [Concomitant]
     Active Substance: IRBESARTAN
     Dosage: 1 {DF}, QD, CUMULATIVE DOSE TO FIRST REACTION: 101.0
     Dates: start: 20220328
  13. POLYETHYLENE GLYCOLS [Concomitant]
     Active Substance: POLYETHYLENE GLYCOLS
     Dosage: 4 {DF}, QD, THEN SIX SACHETS....CUMULATIVE DOSE TO FIRST REACTION: 112.0
     Dates: start: 20220609, end: 20220610
  14. ACETAMINOPHEN [Concomitant]
     Active Substance: ACETAMINOPHEN
     Indication: Pain
     Dosage: 2 DOSAGE FORM, 6 HOUR, CUMULATIVE DOSE TO FIRST REACTION: 728
     Dates: start: 20220407

REACTIONS (3)
  - Joint swelling [Unknown]
  - Swelling face [Recovered/Resolved]
  - Peripheral swelling [Unknown]

NARRATIVE: CASE EVENT DATE: 20220707
